FAERS Safety Report 10087281 (Version 1)
Quarter: 2014Q2

REPORT INFORMATION
  Report Type: Spontaneous
  Country: US (occurrence: US)
  Receive Date: 20140418
  Receipt Date: 20140418
  Transmission Date: 20141212
  Serious: Yes (Life-Threatening, Hospitalization, Other)
  Sender: FDA-Public Use
  Company Number: US-PFIZER INC-2014105741

PATIENT
  Age: 30 Year
  Sex: Female

DRUGS (4)
  1. GEODON [Suspect]
     Indication: SCHIZOPHRENIA
     Dosage: 20 MG, 2X/DAY
     Route: 048
  2. GEODON [Suspect]
     Dosage: 80 MG, 2X/DAY
     Route: 048
  3. SEROQUEL [Suspect]
     Indication: SCHIZOPHRENIA
     Dosage: 25 MG, 1X/DAY
     Route: 048
  4. SEROQUEL [Suspect]
     Dosage: 200 MG, 1X/DAY
     Route: 048

REACTIONS (3)
  - Diabetic ketoacidosis [Recovering/Resolving]
  - Pancreatitis [Recovering/Resolving]
  - Diabetes mellitus [Unknown]
